FAERS Safety Report 22956561 (Version 2)
Quarter: 2025Q3

REPORT INFORMATION
  Report Type: Report from Study
  Country: CA (occurrence: CA)
  Receive Date: 20230919
  Receipt Date: 20250919
  Transmission Date: 20251020
  Serious: Yes (Other)
  Sender: TAKEDA
  Company Number: CA-TAKEDA-2023TUS089004

PATIENT
  Sex: Male

DRUGS (14)
  1. HUMAN IMMUNOGLOBULIN G [Suspect]
     Active Substance: HUMAN IMMUNOGLOBULIN G
     Indication: Primary immunodeficiency syndrome
     Dosage: 10 GRAM, 1/WEEK
     Dates: start: 20191015
  2. OZEMPIC [Suspect]
     Active Substance: SEMAGLUTIDE
     Indication: Diabetes mellitus
  3. SYMBICORT [Concomitant]
     Active Substance: BUDESONIDE\FORMOTEROL FUMARATE DIHYDRATE
  4. INVOKANA [Concomitant]
     Active Substance: CANAGLIFLOZIN
  5. OMEPRAZOLE [Concomitant]
     Active Substance: OMEPRAZOLE
  6. TIAZAC [Concomitant]
     Active Substance: DILTIAZEM HYDROCHLORIDE
  7. DIAZEPAM [Concomitant]
     Active Substance: DIAZEPAM
  8. PERINDOPRIL [Concomitant]
     Active Substance: PERINDOPRIL
  9. TAMSULOSIN [Concomitant]
     Active Substance: TAMSULOSIN
  10. LINAGLIPTIN [Concomitant]
     Active Substance: LINAGLIPTIN
  11. ATORVASTATIN [Concomitant]
     Active Substance: ATORVASTATIN
  12. TADALAFIL [Concomitant]
     Active Substance: TADALAFIL
  13. OMNARIS [Concomitant]
     Active Substance: CICLESONIDE
  14. ALBUTEROL [Concomitant]
     Active Substance: ALBUTEROL

REACTIONS (3)
  - Diabetes mellitus [Unknown]
  - Weight decreased [Unknown]
  - Incorrect product administration duration [Unknown]
